FAERS Safety Report 4614089-8 (Version None)
Quarter: 2005Q1

REPORT INFORMATION
  Report Type: 
  Country: None (occurrence: None)
  Receive Date: 20050315
  Receipt Date: 20050303
  Transmission Date: 20050727
  Serious: Yes (Hospitalization)
  Sender: FDA-Public Use
  Company Number: 2005-00402

PATIENT
  Sex: Female

DRUGS (1)
  1. VELCADE [Suspect]
     Dosage: 3.00 ML,  INTRAMUSCULAR
     Route: 030
     Dates: start: 20050301, end: 20050301

REACTIONS (1)
  - MEDICATION ERROR [None]
